FAERS Safety Report 6086599-0 (Version None)
Quarter: 2009Q1

REPORT INFORMATION
  Report Type: 
  Country: None (occurrence: None)
  Receive Date: 20090223
  Receipt Date: 20090209
  Transmission Date: 20090719
  Serious: Yes (Hospitalization)
  Sender: FDA-Public Use
  Company Number: GB-PFIZER INC-2009171270

PATIENT

DRUGS (1)
  1. NICOTINE [Suspect]
     Dosage: 3 CARTRIDGES DAILY
     Route: 055

REACTIONS (3)
  - ANXIETY [None]
  - DEPRESSION [None]
  - DRUG INEFFECTIVE [None]
